FAERS Safety Report 5285123-X (Version None)
Quarter: 2007Q2

REPORT INFORMATION
  Report Type: 
  Country: None (occurrence: None)
  Receive Date: 20070403
  Receipt Date: 20070320
  Transmission Date: 20071010
  Serious: No
  Sender: FDA-Public Use
  Company Number: US-PFIZER INC-2006127151

PATIENT
  Sex: Female

DRUGS (3)
  1. CELEBREX [Suspect]
  2. BEXTRA [Suspect]
  3. VIOXX [Suspect]
     Dates: start: 20000101, end: 20040130

REACTIONS (1)
  - NO ADVERSE EFFECT [None]
